FAERS Safety Report 23876113 (Version 2)
Quarter: 2024Q3

REPORT INFORMATION
  Report Type: Spontaneous
  Country: US (occurrence: US)
  Receive Date: 20240520
  Receipt Date: 20240718
  Transmission Date: 20241017
  Serious: No
  Sender: SANOFI AVENTIS
  Company Number: US-SA-SAC20240515000450

PATIENT
  Sex: Female

DRUGS (24)
  1. DUPIXENT [Suspect]
     Active Substance: DUPILUMAB
     Indication: Asthma
     Dosage: 300 MG, Q15D
     Route: 058
  2. ALBUTEROL SULFATE [Concomitant]
     Active Substance: ALBUTEROL SULFATE
  3. ALBUTEROL SULFATE [Concomitant]
     Active Substance: ALBUTEROL SULFATE
  4. MONTELUKAST [Concomitant]
     Active Substance: MONTELUKAST SODIUM
  5. MONTELUKAST [Concomitant]
     Active Substance: MONTELUKAST SODIUM
  6. NIFEDIPINE [Concomitant]
     Active Substance: NIFEDIPINE
  7. NIFEDIPINE [Concomitant]
     Active Substance: NIFEDIPINE
  8. ROSUVASTATIN [Concomitant]
     Active Substance: ROSUVASTATIN
  9. ROSUVASTATIN [Concomitant]
     Active Substance: ROSUVASTATIN
  10. TRELEGY ELLIPTA [Concomitant]
     Active Substance: FLUTICASONE FUROATE\UMECLIDINIUM BROMIDE\VILANTEROL TRIFENATATE
  11. TRELEGY ELLIPTA [Concomitant]
     Active Substance: FLUTICASONE FUROATE\UMECLIDINIUM BROMIDE\VILANTEROL TRIFENATATE
  12. ZOLPIDEM TARTRATE [Concomitant]
     Active Substance: ZOLPIDEM TARTRATE
  13. LOSARTAN POTASSIUM [Concomitant]
     Active Substance: LOSARTAN POTASSIUM
  14. LOSARTAN POTASSIUM [Concomitant]
     Active Substance: LOSARTAN POTASSIUM
  15. METOPROLOL [Concomitant]
     Active Substance: METOPROLOL
  16. ASPIRIN [Concomitant]
     Active Substance: ASPIRIN
  17. ASPIRIN [Concomitant]
     Active Substance: ASPIRIN
  18. ESCITALOPRAM [Concomitant]
     Active Substance: ESCITALOPRAM OXALATE
  19. ESCITALOPRAM [Concomitant]
     Active Substance: ESCITALOPRAM OXALATE
  20. GLIPIZIDE [Concomitant]
     Active Substance: GLIPIZIDE
  21. GLIPIZIDE [Concomitant]
     Active Substance: GLIPIZIDE
  22. LEVOTHYROXINE [Concomitant]
     Active Substance: LEVOTHYROXINE\LEVOTHYROXINE SODIUM
  23. LEVOTHYROXINE [Concomitant]
     Active Substance: LEVOTHYROXINE\LEVOTHYROXINE SODIUM
  24. COENZYME COQ10 [Concomitant]

REACTIONS (5)
  - Cough [Not Recovered/Not Resolved]
  - Eczema [Not Recovered/Not Resolved]
  - Pruritus [Not Recovered/Not Resolved]
  - Nasopharyngitis [Not Recovered/Not Resolved]
  - Injection site bruising [Unknown]
